FAERS Safety Report 8718236 (Version 2)
Quarter: 2013Q1

REPORT INFORMATION
  Report Type: Spontaneous
  Country: US (occurrence: US)
  Receive Date: 20120810
  Receipt Date: 20130123
  Transmission Date: 20140127
  Serious: Yes (Other)
  Sender: FDA-Public Use
  Company Number: US-ASTRAZENECA-2012SE13506

PATIENT
  Age: 59 Year
  Sex: Male
  Weight: 123.4 kg

DRUGS (7)
  1. SYMBICORT PMDI [Suspect]
     Indication: CHRONIC OBSTRUCTIVE PULMONARY DISEASE
     Dosage: 160/4.5, TWO TIMES A DAY
     Route: 055
  2. SYMBICORT PMDI [Suspect]
     Indication: EMPHYSEMA
     Dosage: 160/4.5, TWO TIMES A DAY
     Route: 055
  3. CRESTOR [Suspect]
     Indication: BLOOD CHOLESTEROL ABNORMAL
     Route: 048
  4. PRADAXA [Concomitant]
     Indication: CARDIAC DISORDER
     Route: 048
  5. AMIODARONE [Concomitant]
     Indication: CARDIAC DISORDER
  6. TRIAMTERENE 37.5 HCTZ [Concomitant]
  7. XARELTO [Concomitant]

REACTIONS (9)
  - Atrial fibrillation [Unknown]
  - Cardiac disorder [Unknown]
  - Cardiac failure congestive [Unknown]
  - Arthritis [Unknown]
  - Joint range of motion decreased [Unknown]
  - Musculoskeletal pain [Unknown]
  - Arrhythmia [Recovered/Resolved]
  - Chronic obstructive pulmonary disease [Unknown]
  - Sleep apnoea syndrome [Unknown]
